FAERS Safety Report 8780355 (Version 1)
Quarter: 2012Q4

REPORT INFORMATION
  Report Type: Spontaneous
  Country: CA (occurrence: None)
  Receive Date: 20120828
  Receipt Date: 20120828
  Transmission Date: 20130627
  Serious: Yes (Hospitalization, Other)
  Sender: FDA-Public Use
  Company Number: 2012AP002523

PATIENT
  Age: 25 Year
  Sex: Female

DRUGS (11)
  1. AMITRIPTYLINE [Suspect]
     Indication: INTENTIONAL OVERDOSE
  2. FLUOXETINE [Suspect]
     Indication: DRUG USE FOR UNKNOWN INDICATION
  3. OLANZAPINE [Suspect]
     Indication: DRUG USE FOR UNKNOWN INDICATION
  4. QUETIAPINE [Suspect]
     Indication: DRUG USE FOR UNKNOWN INDICATION
  5. GABAPENTIN [Suspect]
     Indication: DRUG USE FOR UNKNOWN INDICATION
  6. ESCITALOPRAM [Suspect]
     Indication: DRUG USE FOR UNKNOWN INDICATION
  7. FLUOXETINE (FLUOXETINE) [Concomitant]
  8. ESCITALOPRAM (ESCITALOPRAM) [Concomitant]
  9. OLANZAPINE (OLANZAPINE) [Concomitant]
  10. QUETIAPINE (QUETIAPINE) [Concomitant]
  11. GABAPENTIN (GABAPENTIN) [Concomitant]

REACTIONS (12)
  - Intentional overdose [None]
  - Coma [None]
  - Tachycardia [None]
  - Electrocardiogram QT prolonged [None]
  - Electrocardiogram QRS complex prolonged [None]
  - Hypotension [None]
  - Hypocalcaemia [None]
  - Haemodynamic instability [None]
  - Cardiotoxicity [None]
  - Hypokalaemia [None]
  - Pulse absent [None]
  - Suicidal ideation [None]
